FAERS Safety Report 18825078 (Version 1)
Quarter: 2021Q1

REPORT INFORMATION
  Report Type: Spontaneous
  Country: US (occurrence: US)
  Receive Date: 20210201
  Receipt Date: 20210201
  Transmission Date: 20210419
  Serious: Yes (Other)
  Sender: FDA-Public Use
  Company Number: US-ABBVIE-20K-163-3328691-00

PATIENT
  Age: 60 Year
  Sex: Female
  Weight: 108.86 kg

DRUGS (1)
  1. HUMIRA [Suspect]
     Active Substance: ADALIMUMAB
     Indication: PRODUCT USED FOR UNKNOWN INDICATION
     Route: 058
     Dates: end: 20200210

REACTIONS (3)
  - Hypertension [Unknown]
  - Lupus-like syndrome [Not Recovered/Not Resolved]
  - Autoimmune disorder [Unknown]

NARRATIVE: CASE EVENT DATE: 202002
